FAERS Safety Report 6706205-9 (Version None)
Quarter: 2010Q2

REPORT INFORMATION
  Report Type: 
  Country: None (occurrence: None)
  Receive Date: 20100430
  Receipt Date: 20100430
  Transmission Date: 20101027
  Serious: Yes (Hospitalization)
  Sender: FDA-Public Use
  Company Number: None

PATIENT
  Sex: Female
  Weight: 67.4 kg

DRUGS (4)
  1. CYTARABINE [Suspect]
     Dosage: 173 MG
     Dates: end: 20090619
  2. DAUNORUBICIN HCL [Suspect]
     Dosage: 155 MG
     Dates: end: 20090619
  3. ETOPOSIDE [Suspect]
     Dosage: 519 MG
     Dates: end: 20090621
  4. IV HYDRATION AND TRANSFUSION SUPPORT [Concomitant]

REACTIONS (13)
  - ABDOMINAL PAIN [None]
  - ACUTE RESPIRATORY DISTRESS SYNDROME [None]
  - CHILLS [None]
  - DIARRHOEA [None]
  - DIZZINESS [None]
  - FLUID OVERLOAD [None]
  - HAEMOPTYSIS [None]
  - LEUKAEMIC INFILTRATION [None]
  - PNEUMONIA [None]
  - PULMONARY OEDEMA [None]
  - PYREXIA [None]
  - SEPSIS [None]
  - TACHYCARDIA [None]
